FAERS Safety Report 4476339-0 (Version None)
Quarter: 2004Q4

REPORT INFORMATION
  Report Type: 
  Country: None (occurrence: None)
  Receive Date: 20041016
  Receipt Date: 20041008
  Transmission Date: 20050328
  Serious: Yes (Death)
  Sender: FDA-Public Use
  Company Number: BR-MERCK-0410BRA00302

PATIENT
  Age: 76 Year
  Sex: Male

DRUGS (1)
  1. VIOXX [Suspect]
     Route: 065
     Dates: start: 20040606, end: 20040606

REACTIONS (4)
  - ASPIRATION [None]
  - COMA [None]
  - DEATH [None]
  - INCREASED BRONCHIAL SECRETION [None]
